FAERS Safety Report 16387849 (Version 3)
Quarter: 2020Q4

REPORT INFORMATION
  Report Type: Report from Study
  Country: None (occurrence: US)
  Receive Date: 20190604
  Receipt Date: 20201119
  Transmission Date: 20210113
  Serious: Yes (Hospitalization, Other)
  Sender: FDA-Public Use
  Company Number: US-ABBVIE-19K-163-2756557-00

PATIENT
  Age: 68 Year
  Sex: Female
  Weight: 77.18 kg

DRUGS (27)
  1. METFORMIN [Concomitant]
     Active Substance: METFORMIN HYDROCHLORIDE
     Indication: DIABETES MELLITUS
  2. LEVOTHYROXINE. [Concomitant]
     Active Substance: LEVOTHYROXINE
     Indication: HYPOTHYROIDISM
  3. VENLAFAXINE [Concomitant]
     Active Substance: VENLAFAXINE HYDROCHLORIDE
     Indication: ANXIETY
  4. LUMIGAN [Concomitant]
     Active Substance: BIMATOPROST
     Indication: GLAUCOMA
  5. POTASSIUM [Concomitant]
     Active Substance: POTASSIUM
     Indication: HYPOKALAEMIA
  6. BREO ELLIPTA [Concomitant]
     Active Substance: FLUTICASONE FUROATE\VILANTEROL TRIFENATATE
     Indication: CHEMICAL BURN
  7. BREO ELLIPTA [Concomitant]
     Active Substance: FLUTICASONE FUROATE\VILANTEROL TRIFENATATE
     Indication: RENAL LITHIASIS PROPHYLAXIS
  8. LUMIGAN [Concomitant]
     Active Substance: BIMATOPROST
     Indication: RENAL LITHIASIS PROPHYLAXIS
  9. POTASSIUM [Concomitant]
     Active Substance: POTASSIUM
     Indication: RENAL LITHIASIS PROPHYLAXIS
  10. VENLAFAXINE [Concomitant]
     Active Substance: VENLAFAXINE HYDROCHLORIDE
     Indication: RENAL LITHIASIS PROPHYLAXIS
  11. DORZOLAMIDE TIMOLOL [Concomitant]
     Active Substance: DORZOLAMIDE
     Indication: RENAL LITHIASIS PROPHYLAXIS
  12. VITAMIN D [Concomitant]
     Active Substance: VITAMIN D NOS
     Indication: VITAMIN D DEFICIENCY
  13. ZOCOR [Concomitant]
     Active Substance: SIMVASTATIN
     Indication: RENAL LITHIASIS PROPHYLAXIS
  14. HUMIRA [Suspect]
     Active Substance: ADALIMUMAB
     Route: 058
     Dates: start: 201810, end: 201905
  15. LEVOTHYROXINE. [Concomitant]
     Active Substance: LEVOTHYROXINE
     Indication: RENAL LITHIASIS PROPHYLAXIS
  16. SULFASALAZINE. [Concomitant]
     Active Substance: SULFASALAZINE
     Indication: RHEUMATOID ARTHRITIS
  17. DORZOLAMIDE TIMOLOL [Concomitant]
     Active Substance: DORZOLAMIDE
     Indication: GLAUCOMA
  18. LOTEMAX [Concomitant]
     Active Substance: LOTEPREDNOL ETABONATE
     Indication: DRY EYE
  19. RESTASIS [Concomitant]
     Active Substance: CYCLOSPORINE
     Indication: DRY EYE
  20. CPAP WITH OXYGEN [Concomitant]
     Indication: SLEEP APNOEA SYNDROME
  21. HUMIRA [Suspect]
     Active Substance: ADALIMUMAB
     Indication: RHEUMATOID ARTHRITIS
     Route: 058
     Dates: start: 201801, end: 201809
  22. HUMIRA [Suspect]
     Active Substance: ADALIMUMAB
     Route: 058
  23. SULFASALAZINE. [Concomitant]
     Active Substance: SULFASALAZINE
     Indication: RENAL LITHIASIS PROPHYLAXIS
  24. VITAMIN D [Concomitant]
     Active Substance: VITAMIN D NOS
     Indication: RENAL LITHIASIS PROPHYLAXIS
  25. LOTEMAX [Concomitant]
     Active Substance: LOTEPREDNOL ETABONATE
     Indication: RENAL LITHIASIS PROPHYLAXIS
  26. RESTASIS [Concomitant]
     Active Substance: CYCLOSPORINE
     Indication: RENAL LITHIASIS PROPHYLAXIS
  27. ZOCOR [Concomitant]
     Active Substance: SIMVASTATIN
     Indication: PRODUCT USED FOR UNKNOWN INDICATION

REACTIONS (5)
  - Procedural pain [Not Recovered/Not Resolved]
  - Meniscus injury [Recovered/Resolved]
  - Exostosis [Recovered/Resolved]
  - Injection site pain [Unknown]
  - Nerve compression [Recovered/Resolved]

NARRATIVE: CASE EVENT DATE: 2018
